FAERS Safety Report 18300352 (Version 2)
Quarter: 2020Q3

REPORT INFORMATION
  Report Type: Spontaneous
  Country: PL (occurrence: PL)
  Receive Date: 20200923
  Receipt Date: 20200925
  Transmission Date: 20201103
  Serious: Yes (Other)
  Sender: FDA-Public Use
  Company Number: PL-AMGEN-POLSP2020150293

PATIENT
  Age: 67 Year
  Sex: Female

DRUGS (8)
  1. LEVOFOLINATE [LEVOFOLINIC ACID] [Concomitant]
     Active Substance: LEVOLEUCOVORIN
     Indication: COLORECTAL ADENOCARCINOMA
     Dosage: 100 MILLIEQUIVALENT PER SQUARE METRE, Q2WK
     Route: 042
     Dates: start: 20200623
  2. OXALIPLATIN. [Suspect]
     Active Substance: OXALIPLATIN
     Indication: METASTASES TO LUNG
     Dosage: UNK UNK, Q2WK (DOSE REDUCED TO 20 PERCENT)
     Route: 042
  3. VECTIBIX [Suspect]
     Active Substance: PANITUMUMAB
     Indication: COLORECTAL ADENOCARCINOMA
     Dosage: 6 MILLIGRAM/KILOGRAM, Q2WK
     Route: 042
     Dates: start: 20200623
  4. 5?FU [FLUOROURACIL] [Concomitant]
     Active Substance: FLUOROURACIL
     Indication: METASTASES TO LUNG
  5. VECTIBIX [Suspect]
     Active Substance: PANITUMUMAB
     Indication: METASTASES TO LUNG
  6. OXALIPLATIN. [Suspect]
     Active Substance: OXALIPLATIN
     Indication: COLORECTAL ADENOCARCINOMA
     Dosage: 85 MILLIGRAM/SQ. METER, Q2WK (DAY 1)
     Route: 042
     Dates: start: 20200623
  7. 5?FU [FLUOROURACIL] [Concomitant]
     Active Substance: FLUOROURACIL
     Indication: COLORECTAL ADENOCARCINOMA
     Dosage: 400 MILLIGRAM/SQ. METER, Q2WK
     Route: 040
     Dates: start: 20200623
  8. LEVOFOLINATE [LEVOFOLINIC ACID] [Concomitant]
     Active Substance: LEVOLEUCOVORIN
     Indication: METASTASES TO LUNG

REACTIONS (8)
  - Hypomagnesaemia [Unknown]
  - Dry skin [Unknown]
  - Paronychia [Unknown]
  - Palmar-plantar erythrodysaesthesia syndrome [Unknown]
  - Stomatitis [Unknown]
  - Neurotoxicity [Unknown]
  - Diarrhoea [Unknown]
  - Erythema [Unknown]

NARRATIVE: CASE EVENT DATE: 2020
